FAERS Safety Report 22284366 (Version 1)
Quarter: 2023Q2

REPORT INFORMATION
  Report Type: Spontaneous
  Country: US (occurrence: None)
  Receive Date: 20230503
  Receipt Date: 20230503
  Transmission Date: 20230721
  Serious: Yes (Hospitalization)
  Sender: FDA-Public Use
  Company Number: None

PATIENT
  Age: 57 Year
  Sex: Male
  Weight: 131 kg

DRUGS (12)
  1. JANSSEN COVID-19 VACCINE [Suspect]
     Active Substance: AD26.COV2.S
  2. LIPITOR [Concomitant]
     Active Substance: ATORVASTATIN CALCIUM
  3. bumetanide (BUMEX)-- [Concomitant]
  4. VITAMIN D3 [Concomitant]
     Active Substance: CHOLECALCIFEROL
  5. ASPIRIN [Concomitant]
     Active Substance: ASPIRIN
  6. AMBIEN [Concomitant]
     Active Substance: ZOLPIDEM TARTRATE
  7. WARFARIN [Concomitant]
     Active Substance: WARFARIN
  8. SENNOSIDES [Concomitant]
     Active Substance: SENNOSIDES
  9. PROTONIX [Concomitant]
     Active Substance: PANTOPRAZOLE SODIUM
  10. AMOXICILLAN [Suspect]
     Active Substance: AMOXICILLIN
  11. ZOSYN [Suspect]
     Active Substance: PIPERACILLIN SODIUM\TAZOBACTAM SODIUM
  12. LEVOFLOXACIN [Suspect]
     Active Substance: LEVOFLOXACIN

REACTIONS (26)
  - Cholangitis [None]
  - Asthenia [None]
  - Fatigue [None]
  - Chills [None]
  - Hypotension [None]
  - Enterococcal infection [None]
  - Candida infection [None]
  - International normalised ratio increased [None]
  - Thrombocytopenia [None]
  - Gallbladder enlargement [None]
  - Acute kidney injury [None]
  - Atrial fibrillation [None]
  - Secondary hypertension [None]
  - Obstructive sleep apnoea syndrome [None]
  - Coronary artery disease [None]
  - Antiphospholipid syndrome [None]
  - Renal transplant [None]
  - Chronic respiratory failure [None]
  - Coagulopathy [None]
  - Diastolic dysfunction [None]
  - Sepsis [None]
  - Acidosis [None]
  - Enterococcal bacteraemia [None]
  - Atrial flutter [None]
  - Hypertension [None]
  - Anal incontinence [None]

NARRATIVE: CASE EVENT DATE: 20230428
